FAERS Safety Report 8107581-5 (Version None)
Quarter: 2012Q1

REPORT INFORMATION
  Report Type: 
  Country: None (occurrence: None)
  Receive Date: 20120202
  Receipt Date: 20120130
  Transmission Date: 20120608
  Serious: Yes (Other)
  Sender: FDA-Public Use
  Company Number: TW-BAYER-2011-089751

PATIENT
  Age: 72 Year
  Sex: Male
  Weight: 59 kg

DRUGS (54)
  1. MEK INHIBITOR (DIHYDROXYPROP-DIFLU-METHOXYPHEN-CYCLOPROPA-SULFAMI) [Suspect]
     Dosage: 50 MG, QD
     Dates: start: 20110927, end: 20110927
  2. MEK INHIBITOR (DIHYDROXYPROP-DIFLU-METHOXYPHEN-CYCLOPROPA-SULFAMI) [Suspect]
     Dosage: 30 MG, QD
     Dates: start: 20111027, end: 20111027
  3. SORAFENIB (RAF KINASE INHIBITOR) [Suspect]
     Dosage: 400 MG, BID
     Dates: start: 20110928, end: 20111019
  4. SORAFENIB (RAF KINASE INHIBITOR) [Suspect]
     Dosage: 400 MG, QD
     Dates: start: 20111028, end: 20111109
  5. OTILONIUM [Concomitant]
     Dosage: 40 MG, TID
     Route: 048
     Dates: start: 20110707
  6. MEK INHIBITOR (DIHYDROXYPROP-DIFLU-METHOXYPHEN-CYCLOPROPA-SULFAMI) [Suspect]
     Dosage: 50 MG, QD
     Dates: start: 20110830, end: 20110830
  7. MEDROXYPROGESTERONE ACETATE [Concomitant]
     Dosage: 500 MG, QD
     Route: 048
     Dates: start: 20110616
  8. ULTRAVIST 150 [Concomitant]
     Dosage: 370MGI/ML, 100ML STAT
     Route: 042
     Dates: start: 20110526
  9. XENETIX [IOBITRIDOL] [Concomitant]
     Dosage: 350MGI/ML, 100ML STAT
     Route: 042
     Dates: start: 20110705
  10. MEK INHIBITOR (DIHYDROXYPROP-DIFLU-METHOXYPHEN-CYCLOPROPA-SULFAMI) [Suspect]
     Indication: HEPATIC NEOPLASM MALIGNANT
     Dosage: 50 MG, BID
     Dates: start: 20110304, end: 20110304
  11. MEK INHIBITOR (DIHYDROXYPROP-DIFLU-METHOXYPHEN-CYCLOPROPA-SULFAMI) [Suspect]
     Dosage: 50 MG, QD
     Dates: start: 20110505, end: 20110505
  12. SORAFENIB (RAF KINASE INHIBITOR) [Suspect]
     Dosage: 400 MG, QD
     Dates: start: 20110728, end: 20110728
  13. SORAFENIB (RAF KINASE INHIBITOR) [Suspect]
     Dosage: 400 MG, QD
     Dates: start: 20111110, end: 20111110
  14. CLEOCIN T [Concomitant]
     Dosage: 30 ML, PRN
     Route: 061
     Dates: start: 20110317
  15. TRIAMCINOLONE [Concomitant]
     Dosage: 0.1%/TUBE, PRN
     Route: 061
     Dates: start: 20110628
  16. MEK INHIBITOR (DIHYDROXYPROP-DIFLU-METHOXYPHEN-CYCLOPROPA-SULFAMI) [Suspect]
     Dosage: 50 MG, QD
     Dates: start: 20110707, end: 20110707
  17. SORAFENIB (RAF KINASE INHIBITOR) [Suspect]
     Indication: HEPATIC NEOPLASM MALIGNANT
     Dosage: DAILY DOSE 600 MG
     Route: 048
     Dates: start: 20110304, end: 20110304
  18. SORAFENIB (RAF KINASE INHIBITOR) [Suspect]
     Dosage: 400 MG, BID
     Dates: start: 20110506, end: 20110525
  19. SORAFENIB (RAF KINASE INHIBITOR) [Suspect]
     Dosage: 400 MG, QD
     Dates: start: 20110707, end: 20110707
  20. MEDROXYPROGESTERONE ACETATE [Concomitant]
     Dosage: 250 MG, QD
     Route: 048
     Dates: start: 20111124
  21. MEK INHIBITOR (DIHYDROXYPROP-DIFLU-METHOXYPHEN-CYCLOPROPA-SULFAMI) [Suspect]
     Dosage: 50 MG, BID
     Dates: start: 20110324, end: 20110406
  22. MEK INHIBITOR (DIHYDROXYPROP-DIFLU-METHOXYPHEN-CYCLOPROPA-SULFAMI) [Suspect]
     Dosage: UNK, BID
     Dates: start: 20110407, end: 20110407
  23. MEK INHIBITOR (DIHYDROXYPROP-DIFLU-METHOXYPHEN-CYCLOPROPA-SULFAMI) [Suspect]
     Dosage: 50 MG, BID
     Dates: start: 20110506, end: 20110525
  24. MEK INHIBITOR (DIHYDROXYPROP-DIFLU-METHOXYPHEN-CYCLOPROPA-SULFAMI) [Suspect]
     Dosage: 50 MG, BID
     Dates: start: 20110616, end: 20110706
  25. MEK INHIBITOR (DIHYDROXYPROP-DIFLU-METHOXYPHEN-CYCLOPROPA-SULFAMI) [Suspect]
     Dosage: 50 MG, BID
     Dates: start: 20110729, end: 20110817
  26. MEK INHIBITOR (DIHYDROXYPROP-DIFLU-METHOXYPHEN-CYCLOPROPA-SULFAMI) [Suspect]
     Dosage: 30 MG, QD
     Dates: start: 20111110, end: 20111110
  27. SORAFENIB (RAF KINASE INHIBITOR) [Suspect]
     Dosage: 400 MG, QD
     Dates: start: 20110505, end: 20110505
  28. IMODIUM [Concomitant]
     Dosage: 5 MG, QD
     Route: 048
     Dates: start: 20110331
  29. ALDACTIDE [Concomitant]
     Dosage: 75 MG, QD
     Route: 048
     Dates: start: 20110901
  30. SORAFENIB (RAF KINASE INHIBITOR) [Suspect]
     Dosage: DAILY DOSE 600 MG
     Route: 048
     Dates: start: 20110305, end: 20110323
  31. SORAFENIB (RAF KINASE INHIBITOR) [Suspect]
     Dosage: DAILY DOSE 800 MG
     Dates: start: 20110324, end: 20110406
  32. SORAFENIB (RAF KINASE INHIBITOR) [Suspect]
     Dosage: 400 MG, BID
     Dates: start: 20110616, end: 20110706
  33. SORAFENIB (RAF KINASE INHIBITOR) [Suspect]
     Dosage: 400 MG, QD
     Dates: start: 20110830, end: 20110830
  34. SORAFENIB (RAF KINASE INHIBITOR) [Suspect]
     Dosage: 400 MG, QD
     Dates: start: 20110927, end: 20110927
  35. SPERSIN [Concomitant]
     Dosage: 10G/TUBE
     Route: 061
     Dates: start: 20110526
  36. XENETIX [IOBITRIDOL] [Concomitant]
     Dosage: 350MG/ML, 100ML
     Route: 042
     Dates: start: 20110927
  37. MEK INHIBITOR (DIHYDROXYPROP-DIFLU-METHOXYPHEN-CYCLOPROPA-SULFAMI) [Suspect]
     Dosage: 50 MG, BID
     Dates: start: 20110305, end: 20110323
  38. MEK INHIBITOR (DIHYDROXYPROP-DIFLU-METHOXYPHEN-CYCLOPROPA-SULFAMI) [Suspect]
     Dosage: 50 MG, BID
     Dates: start: 20110928, end: 20111019
  39. MEK INHIBITOR (DIHYDROXYPROP-DIFLU-METHOXYPHEN-CYCLOPROPA-SULFAMI) [Suspect]
     Dosage: 50 MG, QD
     Dates: start: 20111020, end: 20111020
  40. MEK INHIBITOR (DIHYDROXYPROP-DIFLU-METHOXYPHEN-CYCLOPROPA-SULFAMI) [Suspect]
     Dosage: 30 MG, BID
     Dates: start: 20111028, end: 20111109
  41. SORAFENIB (RAF KINASE INHIBITOR) [Suspect]
     Dosage: 400 MG, BID
     Dates: start: 20110818, end: 20110829
  42. SORAFENIB (RAF KINASE INHIBITOR) [Suspect]
     Dosage: 400 MG, QD
     Dates: start: 20111020, end: 20111020
  43. BISOPROLOL FUMARATE [Concomitant]
     Dosage: 5 MG, QID
     Route: 048
     Dates: start: 20070829
  44. CEPHALEXIN [Concomitant]
     Dosage: 500MG Q6HRS
     Route: 048
     Dates: start: 20110310
  45. XENETIX [IOBITRIDOL] [Concomitant]
     Dosage: 350MGI/ML, 100ML
     Route: 042
     Dates: start: 20111108
  46. MEK INHIBITOR (DIHYDROXYPROP-DIFLU-METHOXYPHEN-CYCLOPROPA-SULFAMI) [Suspect]
     Dosage: 50 MG, BID
     Dates: start: 20110526, end: 20110615
  47. MEK INHIBITOR (DIHYDROXYPROP-DIFLU-METHOXYPHEN-CYCLOPROPA-SULFAMI) [Suspect]
     Dosage: 50 MG, QD
     Dates: start: 20110728, end: 20110728
  48. MEK INHIBITOR (DIHYDROXYPROP-DIFLU-METHOXYPHEN-CYCLOPROPA-SULFAMI) [Suspect]
     Dosage: 50 MG, QD
     Dates: start: 20110818, end: 20110819
  49. SORAFENIB (RAF KINASE INHIBITOR) [Suspect]
     Dosage: 400 MG, QD
     Dates: start: 20110407, end: 20110407
  50. SORAFENIB (RAF KINASE INHIBITOR) [Suspect]
     Dosage: 400 MG, BID
     Dates: start: 20110526, end: 20110615
  51. SORAFENIB (RAF KINASE INHIBITOR) [Suspect]
     Dosage: 400 MG, BID
     Dates: start: 20110729, end: 20110817
  52. GLIBEN [Concomitant]
     Dosage: 5 MG, QD
     Route: 048
     Dates: start: 20020705
  53. SMECTA [SMECTITE] [Concomitant]
     Dosage: 3 G, QD
     Route: 048
     Dates: start: 20110310
  54. ENTECAVIR [Concomitant]
     Dosage: 0.5 MG, QD
     Route: 048
     Dates: start: 20110414

REACTIONS (1)
  - HALLUCINATION [None]
